FAERS Safety Report 4541878-0 (Version None)
Quarter: 2004Q4

REPORT INFORMATION
  Report Type: 
  Country: None (occurrence: None)
  Receive Date: 20041227
  Receipt Date: 20041223
  Transmission Date: 20050328
  Serious: Yes (Hospitalization)
  Sender: FDA-Public Use
  Company Number: 206302

PATIENT
  Age: 39 Year
  Sex: Female

DRUGS (6)
  1. HERCEPTIN [Suspect]
     Indication: BREAST CANCER
     Dosage: 4 MG/KG, SINGLE, INTRAVENOUS; SEE IMAGE
     Route: 042
     Dates: start: 20040401
  2. TAXOTERE [Suspect]
     Indication: BREAST CANCER
     Dosage: 120 MG, Q3W, INTRAVENOUS
     Route: 042
     Dates: start: 20040401
  3. CARBOPLATIN [Suspect]
     Indication: BREAST CANCER
     Dosage: 786 MG, Q3W, INTRAVENOUS
     Route: 042
     Dates: start: 20040401
  4. ONDANSETRON HCL [Concomitant]
  5. DEXAMETHASONE [Concomitant]
  6. METOCLOPRAMIDE (METOCLOPRAMIDE HYDROCHLORIDE) [Concomitant]

REACTIONS (2)
  - NEUTROPENIC INFECTION [None]
  - PHARYNGITIS STREPTOCOCCAL [None]
